FAERS Safety Report 11911030 (Version 1)
Quarter: 2016Q1

REPORT INFORMATION
  Report Type: Spontaneous
  Country: US (occurrence: None)
  Receive Date: 20160111
  Receipt Date: 20160111
  Transmission Date: 20160526
  Serious: Yes (Disabling)
  Sender: FDA-Public Use
  Company Number: None

PATIENT
  Age: 78 Year
  Sex: Female
  Weight: 46.72 kg

DRUGS (13)
  1. EVISTA [Concomitant]
     Active Substance: RALOXIFENE HYDROCHLORIDE
  2. MAGNESIUM [Concomitant]
     Active Substance: MAGNESIUM
  3. VITAMIN K2 [Concomitant]
     Active Substance: MENAQUINONE 6
  4. EVOXAC [Concomitant]
     Active Substance: CEVIMELINE HYDROCHLORIDE
  5. VITAMIN E [Concomitant]
     Active Substance: .ALPHA.-TOCOPHEROL
  6. FLONASE [Concomitant]
     Active Substance: FLUTICASONE PROPIONATE
  7. COQ10 [Concomitant]
     Active Substance: UBIDECARENONE
  8. BIOTIN [Concomitant]
     Active Substance: BIOTIN
  9. JUBLIA [Suspect]
     Active Substance: EFINACONAZOLE
     Indication: ONYCHOMYCOSIS
     Dosage: THIN LAYER NIGHTLY ON TOES AT BEDTIME APPLIED TO A SURFACE, USUALLY THE SKIN
     Route: 061
  10. LOW DOSE PREDNISONE [Concomitant]
  11. CALCIUM [Concomitant]
     Active Substance: CALCIUM
  12. LUTEIN [Concomitant]
     Active Substance: LUTEIN
  13. HAWTHORN [Concomitant]

REACTIONS (4)
  - Condition aggravated [None]
  - Onychomycosis [None]
  - Drug ineffective [None]
  - Rash [None]
